FAERS Safety Report 12649659 (Version 2)
Quarter: 2016Q4

REPORT INFORMATION
  Report Type: Spontaneous
  Country: ES (occurrence: ES)
  Receive Date: 20160812
  Receipt Date: 20161006
  Transmission Date: 20170207
  Serious: Yes (Hospitalization, Disabling, Other)
  Sender: FDA-Public Use
  Company Number: ES-GILEAD-2016-0227134

PATIENT
  Age: 53 Year
  Sex: Male

DRUGS (6)
  1. EVIPLERA [Suspect]
     Active Substance: EMTRICITABINE\RILPIVIRINE\TENOFOVIR DISOPROXIL FUMARATE
     Indication: HIV INFECTION
     Dosage: UNK
     Route: 048
     Dates: start: 20150202, end: 20151127
  2. FLURAZEPAM [Concomitant]
     Active Substance: FLURAZEPAM\FLURAZEPAM HYDROCHLORIDE
     Route: 048
  3. HIDROCORTISONA                     /00028601/ [Concomitant]
     Indication: SECONDARY ADRENOCORTICAL INSUFFICIENCY
     Route: 048
  4. METADONA                           /00068901/ [Concomitant]
     Route: 048
  5. FLURAZEPAM [Concomitant]
     Active Substance: FLURAZEPAM\FLURAZEPAM HYDROCHLORIDE
     Route: 048
  6. FLURAZEPAM [Concomitant]
     Active Substance: FLURAZEPAM\FLURAZEPAM HYDROCHLORIDE
     Route: 048

REACTIONS (1)
  - Osteoporotic fracture [Recovering/Resolving]

NARRATIVE: CASE EVENT DATE: 20151125
